FAERS Safety Report 20910993 (Version 3)
Quarter: 2025Q1

REPORT INFORMATION
  Report Type: Spontaneous
  Country: US (occurrence: US)
  Receive Date: 20220603
  Receipt Date: 20250110
  Transmission Date: 20250409
  Serious: No
  Sender: PFIZER
  Company Number: US-PFIZER INC-202200789712

PATIENT
  Age: 36 Year
  Sex: Female

DRUGS (1)
  1. XELJANZ XR [Suspect]
     Active Substance: TOFACITINIB CITRATE
     Indication: Rheumatoid arthritis
     Dosage: 11 MG, 1X/DAY, IN THE MORNING BEFORE BREAKFAST
     Route: 048
     Dates: start: 202204

REACTIONS (5)
  - Therapeutic product effect incomplete [Unknown]
  - Pain [Unknown]
  - Product dose omission in error [Unknown]
  - Memory impairment [Unknown]
  - Illness [Unknown]
